FAERS Safety Report 19257428 (Version 8)
Quarter: 2021Q4

REPORT INFORMATION
  Report Type: Report from Study
  Country: JP (occurrence: JP)
  Receive Date: 20210513
  Receipt Date: 20211125
  Transmission Date: 20220303
  Serious: Yes (Death)
  Sender: FDA-Public Use
  Company Number: JP-ABBVIE-21K-087-3878908-00

PATIENT
  Age: 80 Year
  Sex: Male
  Weight: 42 kg

DRUGS (4)
  1. VENCLEXTA [Suspect]
     Active Substance: VENETOCLAX
     Indication: Acute myeloid leukaemia
     Route: 048
     Dates: start: 20210419, end: 20210419
  2. VENCLEXTA [Suspect]
     Active Substance: VENETOCLAX
     Route: 048
     Dates: start: 20210420, end: 20210420
  3. VENCLEXTA [Suspect]
     Active Substance: VENETOCLAX
     Route: 048
     Dates: start: 20210421, end: 20210422
  4. AZACITIDINE [Concomitant]
     Active Substance: AZACITIDINE
     Indication: Product used for unknown indication
     Route: 050
     Dates: start: 20210419

REACTIONS (3)
  - Sepsis [Fatal]
  - Enterovirus infection [Fatal]
  - Pancytopenia [Fatal]

NARRATIVE: CASE EVENT DATE: 20210422
